FAERS Safety Report 9631704 (Version 1)
Quarter: 2013Q4

REPORT INFORMATION
  Report Type: Spontaneous
  Country: US (occurrence: US)
  Receive Date: 20131018
  Receipt Date: 20131018
  Transmission Date: 20140711
  Serious: Yes (Hospitalization)
  Sender: FDA-Public Use
  Company Number: US-ELI_LILLY_AND_COMPANY-US201310002596

PATIENT
  Age: 59 Year
  Sex: Female

DRUGS (7)
  1. CYMBALTA [Suspect]
     Indication: DEPRESSION
     Dosage: 120 MG, QD
     Dates: start: 201111
  2. CYMBALTA [Suspect]
     Dosage: UNK, UNKNOWN
  3. CYMBALTA [Suspect]
     Dosage: 60 MG, UNKNOWN
  4. ABILIFY [Suspect]
     Dosage: 2.5 MG, UNKNOWN
  5. ABILIFY [Suspect]
     Dosage: 20 MG, UNKNOWN
  6. CLONAZEPAM [Concomitant]
     Indication: ANXIETY
     Dosage: UNK
     Dates: start: 1993
  7. ADDERALL [Concomitant]
     Indication: ATTENTION DEFICIT/HYPERACTIVITY DISORDER

REACTIONS (5)
  - Bipolar disorder [Unknown]
  - Mania [Unknown]
  - Formication [Unknown]
  - Drug withdrawal syndrome [Unknown]
  - Drug ineffective [Unknown]
